FAERS Safety Report 5524493-1 (Version None)
Quarter: 2007Q4

REPORT INFORMATION
  Report Type: 
  Country: None (occurrence: None)
  Receive Date: 20071122
  Receipt Date: 20071114
  Transmission Date: 20080405
  Serious: Yes (Hospitalization)
  Sender: FDA-Public Use
  Company Number: PHHY2007AR00513

PATIENT
  Age: 57 Year
  Sex: Female

DRUGS (1)
  1. DIOVAN HCT [Suspect]
     Indication: HYPERTENSION
     Dosage: 160/80 MG/DAY
     Dates: start: 20060918

REACTIONS (3)
  - CARDIAC DISORDER [None]
  - PULMONARY OEDEMA [None]
  - SURGERY [None]
